FAERS Safety Report 12217396 (Version 2)
Quarter: 2017Q2

REPORT INFORMATION
  Report Type: Spontaneous
  Country: CH (occurrence: CH)
  Receive Date: 20160329
  Receipt Date: 20170529
  Transmission Date: 20170830
  Serious: Yes (Hospitalization)
  Sender: FDA-Public Use
  Company Number: CH-PFIZER INC-2016170972

PATIENT
  Age: 89 Year
  Sex: Female

DRUGS (22)
  1. CORDARONE [Concomitant]
     Active Substance: AMIODARONE HYDROCHLORIDE
     Dosage: 200 MG, 5 DAYS A WEEK
  2. LASIX [Concomitant]
     Active Substance: FUROSEMIDE
     Dosage: 60 MG, 2X/DAY
  3. MAGNESIOCARD [Concomitant]
     Active Substance: MAGNESIUM ASPARTATE HYDROCHLORIDE
     Dosage: 10 MMOL, DAILY
  4. ZYLORIC [Concomitant]
     Active Substance: ALLOPURINOL
     Dosage: 100 MG, DAILY
  5. XANAX [Suspect]
     Active Substance: ALPRAZOLAM
     Dosage: UNK
     Route: 048
     Dates: start: 2014
  6. SINTROM [Suspect]
     Active Substance: ACENOCOUMAROL
     Indication: ATRIAL FIBRILLATION
     Dosage: UNK
     Route: 048
     Dates: start: 2014, end: 20150624
  7. CRESTOR [Concomitant]
     Active Substance: ROSUVASTATIN CALCIUM
     Dosage: 10 MG, DAILY
  8. NORVASC [Concomitant]
     Active Substance: AMLODIPINE BESYLATE
     Dosage: 10 MG, DAILY
  9. DAFALGAN [Concomitant]
     Active Substance: ACETAMINOPHEN
     Dosage: 1 G, 3X/DAY
  10. ROCEPHINE [Suspect]
     Active Substance: CEFTRIAXONE SODIUM
     Indication: URINARY TRACT INFECTION
     Dosage: UNK
     Route: 041
     Dates: start: 201507, end: 201507
  11. REMERON [Suspect]
     Active Substance: MIRTAZAPINE
     Dosage: 15 MG, 1X/DAY
     Dates: start: 201507
  12. RENITEN /00574902/ [Concomitant]
     Dosage: 20 MG, DAILY
  13. NEXIUM [Concomitant]
     Active Substance: ESOMEPRAZOLE MAGNESIUM
     Dosage: 40 MG, DAILY
  14. TRANSTEC [Interacting]
     Active Substance: BUPRENORPHINE
     Dosage: 70 UG/96H
     Route: 062
  15. ALDACTONE [Concomitant]
     Active Substance: SPIRONOLACTONE
     Dosage: 25 MG, DAILY
  16. XANAX [Suspect]
     Active Substance: ALPRAZOLAM
     Dosage: 0.125 MG, 4X/DAY
     Route: 048
  17. VITAMIN D3 [Concomitant]
     Active Substance: CHOLECALCIFEROL
     Dosage: 800 IU, DAILY
  18. URO VAXOM [Concomitant]
     Dosage: UNK, 1X/DAY
  19. TEMGESIC [Interacting]
     Active Substance: BUPRENORPHINE HYDROCHLORIDE
     Indication: PAIN
     Dosage: UNK
     Route: 060
     Dates: start: 201507
  20. ASPIRIN CARDIO [Concomitant]
     Active Substance: ASPIRIN
     Dosage: 100 MG, DAILY
  21. LYRICA [Suspect]
     Active Substance: PREGABALIN
     Indication: PAIN
     Dosage: 50 MG, 2X/DAY
     Dates: start: 201507
  22. METOLAZONE. [Concomitant]
     Active Substance: METOLAZONE
     Dosage: 2.5 MG, DAILY

REACTIONS (9)
  - Confusional state [Recovered/Resolved]
  - Urinary tract infection [Unknown]
  - Pain [Unknown]
  - Drug interaction [Recovered/Resolved]
  - Hallucination, visual [Unknown]
  - Clostridium difficile colitis [Recovered/Resolved]
  - Traumatic haematoma [Recovered/Resolved]
  - Fall [Recovered/Resolved]
  - Periprosthetic fracture [Recovered/Resolved]

NARRATIVE: CASE EVENT DATE: 20150624
